FAERS Safety Report 5442165-9 (Version None)
Quarter: 2007Q3

REPORT INFORMATION
  Report Type: 
  Country: None (occurrence: None)
  Receive Date: 20070904
  Receipt Date: 20070822
  Transmission Date: 20080115
  Serious: Yes (Hospitalization)
  Sender: FDA-Public Use
  Company Number: CA-ELI_LILLY_AND_COMPANY-CA200708004688

PATIENT
  Age: 62 Year
  Sex: Female

DRUGS (7)
  1. FORTEO [Suspect]
     Indication: OSTEOPOROSIS
     Dosage: 20 UG, DAILY (1/D)
     Route: 058
     Dates: start: 20070404
  2. METHADONE HCL [Concomitant]
  3. LIDOCAINE [Concomitant]
  4. FENTANYL [Concomitant]
  5. METHOTREXATE [Concomitant]
  6. CALTRATE [Concomitant]
  7. VITAMIN D [Concomitant]

REACTIONS (1)
  - HOSPITALISATION [None]
